FAERS Safety Report 9630916 (Version 1)
Quarter: 2013Q4

REPORT INFORMATION
  Report Type: Spontaneous
  Country: IT (occurrence: IT)
  Receive Date: 20131018
  Receipt Date: 20131018
  Transmission Date: 20140711
  Serious: Yes (Other)
  Sender: FDA-Public Use
  Company Number: IT-PFIZER INC-2013297301

PATIENT
  Age: 63 Year
  Sex: Female
  Weight: 162 kg

DRUGS (3)
  1. EPIRUBICIN HCL [Suspect]
     Indication: INVASIVE DUCTAL BREAST CARCINOMA
     Dosage: 160 MG, CYCLIC
     Route: 042
     Dates: start: 20130409
  2. CYCLOPHOSPHAMIDE [Concomitant]
     Indication: INVASIVE DUCTAL BREAST CARCINOMA
     Dosage: UNK
     Dates: start: 20130409, end: 20130729
  3. FLUOROURACIL [Concomitant]
     Indication: INVASIVE DUCTAL BREAST CARCINOMA
     Dosage: UNK
     Dates: start: 20130409, end: 20130729

REACTIONS (1)
  - Hyperbilirubinaemia [Recovered/Resolved]
